FAERS Safety Report 6095858-7 (Version None)
Quarter: 2009Q1

REPORT INFORMATION
  Report Type: 
  Country: None (occurrence: None)
  Receive Date: 20090227
  Receipt Date: 20080630
  Transmission Date: 20090719
  Serious: No
  Sender: FDA-Public Use
  Company Number: A0735374A

PATIENT
  Age: 32 Year
  Sex: Female

DRUGS (3)
  1. LAMICTAL [Suspect]
     Indication: BIPOLAR DISORDER
     Dosage: 200MG PER DAY
     Route: 048
     Dates: start: 20080401
  2. LO/OVRAL [Concomitant]
  3. ADDERALL 10 [Concomitant]

REACTIONS (3)
  - PRURITUS [None]
  - RASH [None]
  - URTICARIA [None]
